FAERS Safety Report 7439792-6 (Version None)
Quarter: 2011Q2

REPORT INFORMATION
  Report Type: 
  Country: None (occurrence: None)
  Receive Date: 20110427
  Receipt Date: 20110331
  Transmission Date: 20111010
  Serious: Yes (Other)
  Sender: FDA-Public Use
  Company Number: FR-SANOFI-AVENTIS-2011SA016687

PATIENT
  Age: 83 Year
  Sex: Female

DRUGS (8)
  1. FOZITEC [Concomitant]
     Dates: start: 20100101
  2. POTASSIUM [Concomitant]
     Dates: start: 20100101
  3. CYMBALTA [Concomitant]
     Dates: start: 20100101
  4. CORGARD [Concomitant]
  5. TAHOR [Concomitant]
  6. PANTOPRAZOLE [Concomitant]
     Dates: start: 20100101
  7. PLAVIX [Suspect]
     Route: 048
     Dates: end: 20100101
  8. CALCIUM [Concomitant]
     Dates: start: 20100101

REACTIONS (3)
  - CONFUSIONAL STATE [None]
  - HAEMATOMA [None]
  - ROAD TRAFFIC ACCIDENT [None]
